FAERS Safety Report 20499508 (Version 1)
Quarter: 2022Q1

REPORT INFORMATION
  Report Type: Spontaneous
  Country: JO (occurrence: JO)
  Receive Date: 20220222
  Receipt Date: 20220222
  Transmission Date: 20220423
  Serious: Yes (Hospitalization, Other)
  Sender: FDA-Public Use
  Company Number: JO-LUPIN PHARMACEUTICALS INC.-2022-02176

PATIENT
  Age: 56 Year
  Sex: Male

DRUGS (1)
  1. METHYLPREDNISOLONE [Suspect]
     Active Substance: METHYLPREDNISOLONE
     Indication: Facial paralysis
     Dosage: UNK (SYSTEMIC)
     Route: 065

REACTIONS (8)
  - Rhinocerebral mucormycosis [Recovering/Resolving]
  - Osteonecrosis [Recovering/Resolving]
  - Periorbital abscess [Recovering/Resolving]
  - Sinusitis [Recovering/Resolving]
  - Cellulitis orbital [Recovering/Resolving]
  - Cavernous sinus thrombosis [Unknown]
  - Drug ineffective for unapproved indication [Unknown]
  - Off label use [Unknown]
